FAERS Safety Report 6908353-7 (Version None)
Quarter: 2010Q3

REPORT INFORMATION
  Report Type: 
  Country: None (occurrence: None)
  Receive Date: 20100803
  Receipt Date: 20100720
  Transmission Date: 20110219
  Serious: Yes (Hospitalization)
  Sender: FDA-Public Use
  Company Number: 233112J09USA

PATIENT
  Age: 57 Year
  Sex: Female
  Weight: 91 kg

DRUGS (11)
  1. REBIF [Suspect]
     Indication: MULTIPLE SCLEROSIS
     Dosage: 44 MCG, 3 IN 1 WK, SUBCUTANEOUS
     Route: 058
     Dates: start: 20070813
  2. SOTALOL HCL [Concomitant]
  3. METOPROLOL SUCCINATE [Concomitant]
  4. PROZAC [Concomitant]
  5. BUDESONIDE [Concomitant]
  6. SIMVASTATIN [Concomitant]
  7. ASPIRIN (ASCETYLSALICYLIC ACID) [Concomitant]
  8. FISH OIL (FISH OIL) [Concomitant]
  9. CELEXA [Concomitant]
  10. MALTEC (ALL OTHER THERAPEUTIC PRODUCTS) [Concomitant]
  11. COUMADIN [Concomitant]

REACTIONS (6)
  - ATRIAL FIBRILLATION [None]
  - ATRIAL FLUTTER [None]
  - FATIGUE [None]
  - HYPERHIDROSIS [None]
  - INFLUENZA LIKE ILLNESS [None]
  - MUSCULOSKELETAL STIFFNESS [None]
